FAERS Safety Report 24682517 (Version 6)
Quarter: 2025Q1

REPORT INFORMATION
  Report Type: Spontaneous
  Country: US (occurrence: US)
  Receive Date: 20241130
  Receipt Date: 20250315
  Transmission Date: 20250409
  Serious: Yes (Life-Threatening, Hospitalization)
  Sender: IPSEN BIOPHARMACEUTICALS, INC.
  Company Number: US-IPSEN Group, Research and Development-2024-24529

PATIENT
  Age: 56 Year
  Sex: Male
  Weight: 89 kg

DRUGS (23)
  1. ONIVYDE [Suspect]
     Active Substance: IRINOTECAN HYDROCHLORIDE
     Indication: Colorectal cancer
     Route: 042
     Dates: start: 20240910
  2. ONIVYDE [Suspect]
     Active Substance: IRINOTECAN HYDROCHLORIDE
     Indication: Off label use
     Route: 042
     Dates: start: 20241021
  3. LEUCOVORIN [Suspect]
     Active Substance: LEUCOVORIN\LEUCOVORIN CALCIUM
     Indication: Colorectal cancer
     Route: 042
     Dates: start: 20240910, end: 20240923
  4. FLUOROURACIL [Suspect]
     Active Substance: FLUOROURACIL
     Indication: Colorectal cancer
     Route: 042
     Dates: start: 20241008
  5. FLUOROURACIL [Suspect]
     Active Substance: FLUOROURACIL
     Route: 042
     Dates: start: 20240910
  6. BEVACIZUMAB [Suspect]
     Active Substance: BEVACIZUMAB
     Indication: Colorectal cancer
     Route: 042
     Dates: start: 20240910, end: 20240923
  7. IBUPROFEN [Concomitant]
     Active Substance: IBUPROFEN
     Dates: start: 20170101
  8. LORATADINE [Concomitant]
     Active Substance: LORATADINE
     Dates: start: 20180101
  9. PEGFILGRASTIM [Concomitant]
     Active Substance: PEGFILGRASTIM
     Dates: start: 20240401
  10. LORAZEPAM [Concomitant]
     Active Substance: LORAZEPAM
     Dates: start: 20240501
  11. OXYCODONE [Concomitant]
     Active Substance: OXYCODONE
     Dates: start: 20240601
  12. MORPHINE [Concomitant]
     Active Substance: MORPHINE
     Dates: start: 20240701
  13. GABAPENTIN [Concomitant]
     Active Substance: GABAPENTIN
     Dates: start: 20240812
  14. FOSAPREPITANT [Concomitant]
     Active Substance: FOSAPREPITANT
     Dates: start: 20240910
  15. PALONOSETRON [Concomitant]
     Active Substance: PALONOSETRON
     Dates: start: 20240910
  16. DEXAMETHASONE [Concomitant]
     Active Substance: DEXAMETHASONE
     Dates: start: 20240910
  17. NALOXONE [Concomitant]
     Active Substance: NALOXONE
     Dates: start: 20240101
  18. CALCIUM CARBONATE [Concomitant]
     Active Substance: CALCIUM CARBONATE
     Dates: start: 20170101
  19. SENNA [Concomitant]
     Active Substance: SENNOSIDES
     Dates: start: 20180101
  20. SIMETHICONE (DIMETHICONE) [Concomitant]
     Active Substance: DIMETHICONE
     Dates: start: 20180101
  21. MIRALAX [Concomitant]
     Active Substance: POLYETHYLENE GLYCOL 3350
     Dates: start: 20240101
  22. BIOTIN [Concomitant]
     Active Substance: BIOTIN
     Dates: start: 20180101
  23. AFRIN [Concomitant]
     Active Substance: OXYMETAZOLINE HYDROCHLORIDE
     Dates: start: 20210101

REACTIONS (2)
  - Platelet count decreased [Recovering/Resolving]
  - Off label use [Unknown]

NARRATIVE: CASE EVENT DATE: 20240910
